FAERS Safety Report 6434935-5 (Version None)
Quarter: 2009Q4

REPORT INFORMATION
  Report Type: 
  Country: None (occurrence: None)
  Receive Date: 20091110
  Receipt Date: 20091106
  Transmission Date: 20100525
  Serious: Yes (Other)
  Sender: FDA-Public Use
  Company Number: JP-EISAI INC.-E2020-04998-CLI-JP

PATIENT
  Sex: Female
  Weight: 45 kg

DRUGS (7)
  1. ARICEPT [Suspect]
     Route: 048
     Dates: start: 20080723, end: 20090525
  2. ARICEPT [Suspect]
     Route: 048
     Dates: start: 20090526
  3. WYPAX [Concomitant]
     Dates: start: 20030301, end: 20081111
  4. BROTIZOLAM [Concomitant]
     Route: 048
     Dates: start: 20040101, end: 20090303
  5. ZOLPIDEM [Concomitant]
     Route: 048
     Dates: start: 20040101
  6. GRAMALIL [Concomitant]
     Route: 048
     Dates: start: 20090331, end: 20090428
  7. YOKU-KAN-SAN (CHINESE HERBAL MEDICINE) [Concomitant]
     Route: 048
     Dates: start: 20090428, end: 20090526

REACTIONS (3)
  - HYPERKINESIA [None]
  - IRRITABILITY [None]
  - RESTLESSNESS [None]
